FAERS Safety Report 9455891 (Version 1)
Quarter: 2013Q3

REPORT INFORMATION
  Report Type: Spontaneous
  Country: BR (occurrence: BR)
  Receive Date: 20130813
  Receipt Date: 20130813
  Transmission Date: 20140515
  Serious: Yes (Hospitalization)
  Sender: FDA-Public Use
  Company Number: BR-ASTRAZENECA-2013SE61854

PATIENT
  Age: 53 Year
  Sex: Male
  Weight: 106 kg

DRUGS (8)
  1. CRESTOR [Suspect]
     Indication: BLOOD CHOLESTEROL INCREASED
     Route: 048
     Dates: start: 2010
  2. BENICAR HCT [Suspect]
     Indication: HYPERTENSION
     Dosage: UNKNOWN
     Route: 065
  3. ZETIA [Concomitant]
     Indication: BLOOD CHOLESTEROL INCREASED
     Dosage: DAILY
  4. ADALAT OROS [Concomitant]
     Indication: HYPERTENSION
     Dosage: UNKNOWN
  5. ALDACTONE [Concomitant]
     Indication: HYPERTENSION
     Dosage: UNKNOWN
  6. ASA [Concomitant]
     Dosage: UNKNOWN
  7. GLIFAGE XR [Concomitant]
     Indication: GLUCOSE TOLERANCE IMPAIRED
     Dosage: UNKNOWN
  8. SYNTHROID [Concomitant]
     Indication: THYROID DISORDER
     Dosage: UNKNOWN

REACTIONS (1)
  - Coronary artery occlusion [Recovered/Resolved]
